FAERS Safety Report 4559460-8 (Version None)
Quarter: 2005Q1

REPORT INFORMATION
  Report Type: 
  Country: None (occurrence: None)
  Receive Date: 20050119
  Receipt Date: 20041222
  Transmission Date: 20050727
  Serious: Yes (Hospitalization)
  Sender: FDA-Public Use
  Company Number: 2004JP002264

PATIENT
  Age: 10 Year
  Sex: Male

DRUGS (5)
  1. PROGRAF [Suspect]
     Indication: BONE MARROW TRANSPLANT
  2. FLUDARABINE PHOSPHATE [Concomitant]
  3. MELPHALAN (MELPHALAN) [Concomitant]
  4. ATGAM [Concomitant]
  5. METHYLPREDNISOLONE [Concomitant]

REACTIONS (6)
  - HEADACHE [None]
  - INTESTINAL ISCHAEMIA [None]
  - PHOTOPHOBIA [None]
  - THERAPY NON-RESPONDER [None]
  - THROMBOTIC MICROANGIOPATHY [None]
  - TREMOR [None]
